APPROVED DRUG PRODUCT: PENICILLIN G PROCAINE
Active Ingredient: PENICILLIN G PROCAINE
Strength: 600,000 UNITS/1.2ML
Dosage Form/Route: INJECTABLE;INJECTION
Application: A060800 | Product #002
Applicant: CONSOLIDATED PHARMACEUTICAL GROUP INC
Approved: Approved Prior to Jan 1, 1982 | RLD: No | RS: No | Type: DISCN